FAERS Safety Report 4470115-0 (Version None)
Quarter: 2004Q3

REPORT INFORMATION
  Report Type: 
  Country: None (occurrence: None)
  Receive Date: 20040910
  Receipt Date: 20040713
  Transmission Date: 20050211
  Serious: No
  Sender: FDA-Public Use
  Company Number: 2004223407US

PATIENT
  Age: 82 Year
  Sex: Female
  Weight: 54.4 kg

DRUGS (5)
  1. BEXTRA [Suspect]
     Indication: SCOLIOSIS
     Dosage: 10 MG, QD; 5 MG : ORAL
     Route: 048
     Dates: start: 20040701, end: 20040701
  2. ZOLOFT [Concomitant]
  3. DYAZIDE [Concomitant]
  4. CENTRUM (VITAMIN NOS) [Concomitant]
  5. VITAMIN E [Concomitant]

REACTIONS (7)
  - ANAL DISCOMFORT [None]
  - DRUG INEFFECTIVE [None]
  - DYSPHAGIA [None]
  - DYSPNOEA [None]
  - HEADACHE [None]
  - INSOMNIA [None]
  - NAUSEA [None]
